FAERS Safety Report 7491459-4 (Version None)
Quarter: 2011Q2

REPORT INFORMATION
  Report Type: 
  Country: None (occurrence: None)
  Receive Date: 20110519
  Receipt Date: 20110512
  Transmission Date: 20111010
  Serious: Yes (Other)
  Sender: FDA-Public Use
  Company Number: PHHY2011AU12288

PATIENT
  Sex: Female

DRUGS (2)
  1. ESTRADIOL [Suspect]
     Dosage: 50/140
     Route: 062
  2. ESTRADIOL [Suspect]
     Dosage: 50/250
     Route: 062

REACTIONS (9)
  - AUTOIMMUNE THYROIDITIS [None]
  - CANDIDIASIS [None]
  - VAGINAL HAEMORRHAGE [None]
  - HOT FLUSH [None]
  - CYSTITIS [None]
  - BREAST CYST [None]
  - HEART RATE ABNORMAL [None]
  - FEELING ABNORMAL [None]
  - HORMONE LEVEL ABNORMAL [None]
